FAERS Safety Report 8545572-0 (Version None)
Quarter: 2012Q3

REPORT INFORMATION
  Report Type: 
  Country: None (occurrence: None)
  Receive Date: 20120727
  Receipt Date: 20111026
  Transmission Date: 20120928
  Serious: No
  Sender: FDA-Public Use
  Company Number: US-ASTRAZENECA-2011SE64909

PATIENT
  Age: 55 Year
  Sex: Female
  Weight: 72.6 kg

DRUGS (9)
  1. AMBIEN [Concomitant]
  2. SEROQUEL XR [Suspect]
     Route: 048
  3. AMOXICILLIN [Concomitant]
     Indication: BRONCHITIS
  4. SEROQUEL XR [Suspect]
     Indication: BIPOLAR DISORDER
     Route: 048
  5. ZYRTEC [Concomitant]
     Indication: HYPERSENSITIVITY
  6. SEROQUEL XR [Suspect]
     Route: 048
  7. CLONIPINE [Concomitant]
  8. PROZAC [Concomitant]
  9. PRILOSEC [Concomitant]
     Indication: GASTROOESOPHAGEAL REFLUX DISEASE

REACTIONS (2)
  - BRONCHITIS [None]
  - PNEUMONIA [None]
